FAERS Safety Report 7634987-0 (Version None)
Quarter: 2011Q3

REPORT INFORMATION
  Report Type: 
  Country: None (occurrence: None)
  Receive Date: 20110718
  Receipt Date: 20110705
  Transmission Date: 20111222
  Serious: Yes (Other)
  Sender: FDA-Public Use
  Company Number: 2011MA007668

PATIENT
  Age: 53 Year
  Sex: Female

DRUGS (1)
  1. PHENYTOIN [Suspect]
     Indication: PROPHYLAXIS
     Dosage: 300 MG

REACTIONS (8)
  - RASH MACULO-PAPULAR [None]
  - HYPERAEMIA [None]
  - ERYTHEMA [None]
  - OEDEMA [None]
  - SWELLING FACE [None]
  - ERYTHEMA MULTIFORME [None]
  - DERMATITIS BULLOUS [None]
  - RASH GENERALISED [None]
